FAERS Safety Report 23107238 (Version 4)
Quarter: 2024Q1

REPORT INFORMATION
  Report Type: Report from Study
  Country: US (occurrence: US)
  Receive Date: 20231026
  Receipt Date: 20240206
  Transmission Date: 20240409
  Serious: No
  Sender: FDA-Public Use
  Company Number: US-ACADIA PHARMACEUTICALS INC.-ACA-2023-PIM-004491

PATIENT
  Age: 63 Year
  Sex: Male

DRUGS (23)
  1. NUPLAZID [Suspect]
     Active Substance: PIMAVANSERIN TARTRATE
     Indication: Parkinson^s disease psychosis
     Dosage: 34 MILLIGRAM, QD
     Route: 048
     Dates: start: 20201218
  2. APAP [Concomitant]
     Active Substance: ACETAMINOPHEN
  3. CARBIDOPA LEVODOPA [Concomitant]
     Active Substance: CARBIDOPA\LEVODOPA
     Dosage: 25-100 MG
     Dates: start: 20120618
  4. CYANOCOBALAMIN [Concomitant]
     Active Substance: CYANOCOBALAMIN
  5. FLUDROCORTISONE [Concomitant]
     Active Substance: FLUDROCORTISONE
     Dosage: 0.1 MG
     Dates: start: 2018
  6. IBUPROFEN [Concomitant]
     Active Substance: IBUPROFEN
  7. MIDODRINE [Concomitant]
     Active Substance: MIDODRINE
     Dosage: 5 MILLIGRAM, TID
  8. NITROFURANTOIN [Concomitant]
     Active Substance: NITROFURANTOIN
  9. NYSTATIN [Concomitant]
     Active Substance: NYSTATIN
     Route: 061
  10. RIVASTIGMINE [Concomitant]
     Active Substance: RIVASTIGMINE
     Dosage: 9.5 MG/ 24 HRS
     Route: 062
     Dates: start: 2018
  11. VENLAFAXINE [Concomitant]
     Active Substance: VENLAFAXINE HYDROCHLORIDE
     Dosage: 37.5 MG
  12. FINASTERIDE [Concomitant]
     Active Substance: FINASTERIDE
  13. QUETIAPINE [Concomitant]
     Active Substance: QUETIAPINE
  14. METHENAMINE HIPPURATE [Concomitant]
     Active Substance: METHENAMINE HIPPURATE
  15. VITAMINS NOS [Concomitant]
     Active Substance: VITAMINS
     Dosage: ONCE A WEEK AS NEEDED
     Dates: end: 20220929
  16. REQUIP XL [Concomitant]
     Active Substance: ROPINIROLE HYDROCHLORIDE
     Dosage: 6 MILLIGRAM, BID
     Route: 048
     Dates: end: 20181018
  17. ROBINUL [Concomitant]
     Active Substance: GLYCOPYRROLATE
     Indication: Drooling
     Dosage: 1 MILLIGRAM, Q8H PRN AS NEEDED
     Route: 048
  18. SELEGILINE [Concomitant]
     Active Substance: SELEGILINE
     Dosage: 5 MILLIGRAM, BID, 1 TABLET EVERY MORNING THEN 1 TABLET QNOON
     Route: 048
     Dates: end: 20200507
  19. KLONOPIN [Concomitant]
     Active Substance: CLONAZEPAM
     Dosage: 0.5 MILLIGRAM, 1 TABLET BY MOUTH EVERY EVENING AT BEDTIME
  20. ALPRAZOLAM [Concomitant]
     Active Substance: ALPRAZOLAM
     Dosage: 0.25 MILLIGRAM, 1 TABLET AS NEEDED
     Dates: end: 20191022
  21. LEVITRA [Concomitant]
     Active Substance: VARDENAFIL HYDROCHLORIDE
     Dosage: 20 MILLIGRAM, 1 TABLET AS NEEDED
     Dates: end: 20190711
  22. MELATONIN [Concomitant]
     Active Substance: MELATONIN
     Dosage: ONE TABLET AS NEEDED
     Dates: end: 20220929
  23. SINEMET [Concomitant]
     Active Substance: CARBIDOPA\LEVODOPA
     Dosage: 1 TABLET BY MOUTH FOUR TIMES A DAY
     Route: 048

REACTIONS (4)
  - Joint injury [Recovered/Resolved]
  - Head injury [Recovered/Resolved]
  - Fall [Recovered/Resolved]
  - Fall [Recovered/Resolved]

NARRATIVE: CASE EVENT DATE: 20230924
